FAERS Safety Report 25149879 (Version 1)
Quarter: 2025Q2

REPORT INFORMATION
  Report Type: Report from Study
  Country: US (occurrence: US)
  Receive Date: 20250402
  Receipt Date: 20250402
  Transmission Date: 20250717
  Serious: Yes (Hospitalization)
  Sender: ALEXION PHARMACEUTICALS
  Company Number: 202412USA026171US

PATIENT

DRUGS (1)
  1. BENRALIZUMAB [Suspect]
     Active Substance: BENRALIZUMAB
     Indication: Asthma
     Dosage: WEEK 0 (12/27/24), 4 (LATE 1/28/25) AND 8 (2/25/25), THEN INJECT 1 PEN EVERY 8 WEEKS THEREAFTER (DUE 4/22/25)

REACTIONS (1)
  - Respiratory syncytial virus infection [Unknown]
